FAERS Safety Report 5543575-1 (Version None)
Quarter: 2007Q4

REPORT INFORMATION
  Report Type: 
  Country: None (occurrence: None)
  Receive Date: 20071210
  Receipt Date: 20061109
  Transmission Date: 20080405
  Serious: No
  Sender: FDA-Public Use
  Company Number: US-AMGEN-KDL199808

PATIENT
  Sex: Male

DRUGS (2)
  1. ENBREL [Suspect]
     Indication: RHEUMATOID ARTHRITIS
     Route: 058
     Dates: start: 20060919
  2. METHOTREXATE [Concomitant]
     Route: 048
     Dates: start: 20060919

REACTIONS (3)
  - COUGH [None]
  - HEADACHE [None]
  - RHINORRHOEA [None]
